FAERS Safety Report 4932699-5 (Version None)
Quarter: 2006Q1

REPORT INFORMATION
  Report Type: 
  Country: None (occurrence: None)
  Receive Date: 20060301
  Receipt Date: 20060217
  Transmission Date: 20060701
  Serious: Yes (Hospitalization, Other)
  Sender: FDA-Public Use
  Company Number: KII-2006-0021009

PATIENT
  Age: 25 Year
  Sex: Female

DRUGS (2)
  1. OXYCONTIN [Suspect]
     Indication: BACK PAIN
     Dosage: ORAL
     Route: 048
  2. HYDROMORPHONE HCL [Suspect]
     Dosage: ORAL
     Route: 048

REACTIONS (2)
  - COMA [None]
  - REFUSAL OF TREATMENT BY PATIENT [None]
